FAERS Safety Report 4819979-9 (Version None)
Quarter: 2005Q4

REPORT INFORMATION
  Report Type: 
  Country: None (occurrence: None)
  Receive Date: 20051103
  Receipt Date: 20050719
  Transmission Date: 20060501
  Serious: Yes (Death)
  Sender: FDA-Public Use
  Company Number: US-MERCK-0507USA02753

PATIENT
  Age: 74 Year
  Sex: Male
  Weight: 109 kg

DRUGS (16)
  1. SINEMET [Concomitant]
     Indication: PARKINSON'S DISEASE
     Route: 065
     Dates: start: 19950202, end: 20040706
  2. CLONAZEPAM [Concomitant]
     Indication: ANXIETY
     Route: 065
     Dates: start: 20040428
  3. COLACE [Concomitant]
     Route: 065
     Dates: start: 20040326, end: 20040428
  4. VIOXX [Suspect]
     Indication: MONARTHRITIS
     Route: 048
     Dates: start: 20040420, end: 20040708
  5. AMANTADINE HYDROCHLORIDE [Concomitant]
     Indication: PARKINSON'S DISEASE
     Route: 065
     Dates: start: 19970421, end: 20040201
  6. AMBIEN [Concomitant]
     Indication: INSOMNIA
     Route: 065
     Dates: start: 20040428, end: 20040706
  7. DULCOLAX [Concomitant]
     Route: 065
     Dates: start: 20040326, end: 20040428
  8. FOSAMAX [Concomitant]
     Indication: OSTEOPOROSIS
     Route: 048
     Dates: start: 20040318, end: 20040601
  9. KENALOG [Concomitant]
     Indication: ARTHRITIS
     Route: 065
     Dates: start: 20040508
  10. MIRAPEX [Concomitant]
     Indication: PARKINSON'S DISEASE
     Route: 065
     Dates: start: 20001220, end: 20040708
  11. PROTONIX [Concomitant]
     Indication: PEPTIC ULCER
     Route: 065
     Dates: start: 20040318, end: 20040706
  12. THERAGRAN TABLETS ADVANCED FORMULA [Concomitant]
     Route: 065
     Dates: start: 20040428
  13. XYLOCAINE [Concomitant]
     Indication: ANALGESIC EFFECT
     Route: 065
     Dates: start: 20040508
  14. ACETAMINOPHEN AND PROPOXYPHENE NAPSYLATE [Concomitant]
     Route: 065
     Dates: start: 20040121, end: 20040401
  15. METAMUCIL [Concomitant]
     Route: 065
     Dates: start: 20040326, end: 20040428
  16. DILANTIN [Concomitant]
     Indication: CONVULSION
     Route: 065
     Dates: start: 20040428, end: 20040706

REACTIONS (5)
  - CARDIO-RESPIRATORY ARREST [None]
  - CONVULSION [None]
  - LOSS OF CONSCIOUSNESS [None]
  - PULMONARY EMBOLISM [None]
  - SUDDEN DEATH [None]
